FAERS Safety Report 7218329-0 (Version None)
Quarter: 2011Q1

REPORT INFORMATION
  Report Type: 
  Country: None (occurrence: None)
  Receive Date: 20110110
  Receipt Date: 20101123
  Transmission Date: 20110831
  Serious: No
  Sender: FDA-Public Use
  Company Number: US-BRISTOL-MYERS SQUIBB COMPANY-15402621

PATIENT
  Sex: Female

DRUGS (4)
  1. TRAZODONE HCL [Suspect]
     Dosage: 1DF:1/2 TAB AT BED TIME
     Dates: start: 20100101
  2. ZOLPIDEM [Concomitant]
  3. PAXIL [Concomitant]
  4. ATIVAN [Concomitant]
     Dosage: FEW TIMES A WEEK

REACTIONS (1)
  - AMNESIA [None]
